FAERS Safety Report 13464782 (Version 1)
Quarter: 2017Q2

REPORT INFORMATION
  Report Type: Other
  Country: US (occurrence: US)
  Receive Date: 20170420
  Receipt Date: 20170420
  Transmission Date: 20170830
  Serious: Yes (Hospitalization)
  Sender: FDA-Public Use
  Company Number: US-ARALEZ PHARMACEUTICALS R+D INC.-ARA-TP-US-2017-389

PATIENT
  Age: 68 Year
  Sex: Male
  Weight: 118.04 kg

DRUGS (7)
  1. BRILINTA [Suspect]
     Active Substance: TICAGRELOR
     Indication: STENT PLACEMENT
     Route: 048
     Dates: start: 20160430
  2. CANASA [Concomitant]
     Active Substance: MESALAMINE
     Indication: HAEMORRHAGE
     Route: 054
  3. PANTOPRAZOLE [Concomitant]
     Active Substance: PANTOPRAZOLE
     Indication: BARRETT^S OESOPHAGUS
  4. ATORVASTATIN [Concomitant]
     Active Substance: ATORVASTATIN
     Indication: HYPERCHOLESTEROLAEMIA
  5. METOPROLOL SUCCINATE. [Suspect]
     Active Substance: METOPROLOL SUCCINATE
     Indication: CARDIAC DISORDER
     Dates: start: 201605, end: 201606
  6. BABY ASPIRIN [Concomitant]
     Active Substance: ASPIRIN
     Indication: PRODUCT USED FOR UNKNOWN INDICATION
  7. CARVEDILOL. [Concomitant]
     Active Substance: CARVEDILOL
     Indication: CARDIAC DISORDER

REACTIONS (13)
  - Bradycardia [Recovered/Resolved]
  - Diverticulitis [Not Recovered/Not Resolved]
  - Rash generalised [Recovering/Resolving]
  - Blister rupture [Unknown]
  - Off label use [Recovered/Resolved]
  - Rash vesicular [Not Recovered/Not Resolved]
  - Pruritus generalised [Unknown]
  - Biopsy skin [Recovered/Resolved]
  - Pruritus [Unknown]
  - Rash generalised [Not Recovered/Not Resolved]
  - Blood blister [Unknown]
  - Coronary artery disease [Unknown]
  - Scab [Unknown]

NARRATIVE: CASE EVENT DATE: 201605
